FAERS Safety Report 4722722-5 (Version None)
Quarter: 2005Q3

REPORT INFORMATION
  Report Type: 
  Country: None (occurrence: None)
  Receive Date: 20050720
  Receipt Date: 20050706
  Transmission Date: 20060218
  Serious: Yes (Hospitalization)
  Sender: FDA-Public Use
  Company Number: US-2005-002139

PATIENT
  Age: 58 Year
  Sex: Female
  Weight: 95.2 kg

DRUGS (12)
  1. BETASERON [Suspect]
     Indication: MULTIPLE SCLEROSIS
     Dosage: 8 MIU, EVERY 2D, SUBCUTANEOUS
     Route: 058
     Dates: start: 20040903
  2. ZOLOFT [Concomitant]
  3. XANAX [Concomitant]
  4. ZYPREXA [Concomitant]
  5. ENALAPRIL MALEATE [Concomitant]
  6. DILANTIN   /AUS/(PHENYTOIN SODIUM) [Concomitant]
  7. DETROL [Concomitant]
  8. BACLOFEN [Concomitant]
  9. PHENYTEK (PHENYTOIN) [Concomitant]
  10. CARBIDOPA (CARBIDOPA) [Concomitant]
  11. ATENOLOL [Concomitant]
  12. ARICEPT [Concomitant]

REACTIONS (8)
  - BLOOD UREA INCREASED [None]
  - BRONCHITIS VIRAL [None]
  - FALL [None]
  - GASTROENTERITIS VIRAL [None]
  - HAEMATOCRIT DECREASED [None]
  - INSOMNIA [None]
  - STAPHYLOCOCCAL BACTERAEMIA [None]
  - STRESS [None]
